FAERS Safety Report 21506991 (Version 2)
Quarter: 2022Q4

REPORT INFORMATION
  Report Type: Report from Study
  Country: US (occurrence: None)
  Receive Date: 20221026
  Receipt Date: 20221102
  Transmission Date: 20230113
  Serious: Yes (Hospitalization)
  Sender: FDA-Public Use
  Company Number: US-ROCHE-3204905

PATIENT
  Age: 85 Year

DRUGS (2)
  1. ATEZOLIZUMAB [Suspect]
     Active Substance: ATEZOLIZUMAB
     Indication: Endometrial cancer recurrent
     Dosage: LAST DOSE RECEIVED: 1680MG(17/APR/2022)
     Route: 041
     Dates: start: 20210820
  2. IPATASERTIB [Suspect]
     Active Substance: IPATASERTIB
     Indication: Endometrial cancer recurrent
     Dosage: LAST DOSE RECEIVED:8400 MG(17/APR/2022)
     Route: 048
     Dates: start: 20210820

REACTIONS (1)
  - Small intestinal obstruction [Recovered/Resolved]

NARRATIVE: CASE EVENT DATE: 20220417
